FAERS Safety Report 21597921 (Version 2)
Quarter: 2023Q2

REPORT INFORMATION
  Report Type: Report from Study
  Country: CA (occurrence: CA)
  Receive Date: 20221115
  Receipt Date: 20230519
  Transmission Date: 20230721
  Serious: Yes (Other)
  Sender: FDA-Public Use
  Company Number: CA-ABBVIE-4198677

PATIENT
  Sex: Female

DRUGS (1)
  1. RINVOQ [Suspect]
     Active Substance: UPADACITINIB
     Indication: Rheumatoid arthritis
     Dosage: 15 MILLIGRAM
     Route: 048
     Dates: start: 20220506

REACTIONS (4)
  - Lower limb fracture [Unknown]
  - Spinal fracture [Unknown]
  - Fibula fracture [Unknown]
  - Fall [Unknown]

NARRATIVE: CASE EVENT DATE: 20220101
